FAERS Safety Report 20196965 (Version 1)
Quarter: 2021Q4

REPORT INFORMATION
  Report Type: Spontaneous
  Country: RU (occurrence: RU)
  Receive Date: 20211217
  Receipt Date: 20211217
  Transmission Date: 20220303
  Serious: Yes (Other)
  Sender: FDA-Public Use
  Company Number: RU-ABBVIE-21K-251-4202704-00

PATIENT
  Age: 4 Year
  Sex: Male

DRUGS (1)
  1. VALPROIC ACID [Suspect]
     Active Substance: VALPROIC ACID
     Indication: Partial seizures
     Route: 065
     Dates: end: 20180529

REACTIONS (3)
  - Epilepsy [Not Recovered/Not Resolved]
  - Suspected counterfeit product [Unknown]
  - Rash [Not Recovered/Not Resolved]
